FAERS Safety Report 15722298 (Version 2)
Quarter: 2018Q4

REPORT INFORMATION
  Report Type: Report from Study
  Country: KR (occurrence: KR)
  Receive Date: 20181214
  Receipt Date: 20181218
  Transmission Date: 20190205
  Serious: Yes (Hospitalization)
  Sender: FDA-Public Use
  Company Number: KR-ROCHE-2226438

PATIENT
  Age: 57 Year
  Sex: Female
  Weight: 53 kg

DRUGS (8)
  1. ADEFOVIR [Suspect]
     Active Substance: ADEFOVIR
     Indication: PRODUCT USED FOR UNKNOWN INDICATION
     Route: 048
     Dates: start: 20120112
  2. ENTECAVIR. [Suspect]
     Active Substance: ENTECAVIR
     Indication: PRODUCT USED FOR UNKNOWN INDICATION
     Route: 048
     Dates: start: 20140308
  3. ALBIS [Concomitant]
     Active Substance: BISMUTH SUBCITRATE\RANITIDINE HYDROCHLORIDE\SUCRALFATE
     Route: 065
     Dates: start: 20181011
  4. VERASE [Concomitant]
     Route: 065
     Dates: start: 20180919, end: 20181008
  5. PEG-INTERFERON ALFA 2A [Suspect]
     Active Substance: PEGINTERFERON ALFA-2A
     Indication: CHRONIC HEPATITIS B
     Route: 058
     Dates: start: 20151214, end: 20161118
  6. REBACOS [Concomitant]
     Route: 065
     Dates: start: 20180919, end: 20181008
  7. CEFADOR [Concomitant]
     Active Substance: CEFADROXIL
     Route: 065
     Dates: start: 20180919, end: 20181008
  8. CELECOXIB. [Concomitant]
     Active Substance: CELECOXIB
     Route: 065
     Dates: start: 20181011

REACTIONS (3)
  - Foot fracture [Recovered/Resolved with Sequelae]
  - Patella fracture [Recovered/Resolved with Sequelae]
  - Ankle fracture [Recovered/Resolved with Sequelae]

NARRATIVE: CASE EVENT DATE: 20180907
